FAERS Safety Report 4583720-8 (Version None)
Quarter: 2005Q1

REPORT INFORMATION
  Report Type: 
  Country: None (occurrence: None)
  Receive Date: 20050125
  Receipt Date: 20041007
  Transmission Date: 20050727
  Serious: No
  Sender: FDA-Public Use
  Company Number: USA041080536

PATIENT
  Age: 79 Year
  Sex: Female
  Weight: 59 kg

DRUGS (6)
  1. FORTEO [Suspect]
     Indication: OSTEOPOROSIS
     Dosage: 29 UG/1 DAY
     Dates: start: 20031201
  2. UNSPECIFIED HEART MEDICATION [Concomitant]
  3. ASPIRIN [Concomitant]
  4. GEMFIBROZIL [Concomitant]
  5. TOPROL XOL (METOPROLOL SUCCINATE) [Concomitant]
  6. ZETIA [Concomitant]

REACTIONS (2)
  - DIARRHOEA [None]
  - FLATULENCE [None]
